FAERS Safety Report 8381624 (Version 3)
Quarter: 2012Q4

REPORT INFORMATION
  Report Type: 
  Country: AU (occurrence: AU)
  Receive Date: 20120131
  Receipt Date: 20121130
  Transmission Date: 20130627
  Serious: Yes (Hospitalization, Other)
  Sender: FDA-Public Use
  Company Number: AU-ELI_LILLY_AND_COMPANY-AU201201006606

PATIENT
  Sex: Male
  Weight: 121 kg

DRUGS (2)
  1. BYETTA [Suspect]
     Dosage: 5 ug, unknown
  2. BYETTA [Suspect]
     Dosage: 10 ug, bid

REACTIONS (2)
  - Coronary artery bypass [Unknown]
  - Impaired healing [Not Recovered/Not Resolved]
